FAERS Safety Report 7677476-X (Version None)
Quarter: 2011Q3

REPORT INFORMATION
  Report Type: 
  Country: None (occurrence: None)
  Receive Date: 20110811
  Receipt Date: 20110511
  Transmission Date: 20111222
  Serious: Yes (Hospitalization)
  Sender: FDA-Public Use
  Company Number: US-BRISTOL-MYERS SQUIBB COMPANY-15736978

PATIENT
  Sex: Male

DRUGS (3)
  1. RITONAVIR [Suspect]
  2. REYATAZ [Suspect]
  3. TRUVADA [Suspect]

REACTIONS (3)
  - JAUNDICE [None]
  - ASPARTATE AMINOTRANSFERASE INCREASED [None]
  - ALANINE AMINOTRANSFERASE INCREASED [None]
